FAERS Safety Report 6861989-4 (Version None)
Quarter: 2010Q3

REPORT INFORMATION
  Report Type: 
  Country: None (occurrence: None)
  Receive Date: 20100721
  Receipt Date: 20100707
  Transmission Date: 20110219
  Serious: Yes (Other)
  Sender: FDA-Public Use
  Company Number: PHHY2010JP44860

PATIENT
  Age: 77 Year
  Sex: Male
  Weight: 59 kg

DRUGS (7)
  1. LAMISIL [Suspect]
     Indication: ONYCHOMYCOSIS
     Dosage: 125 MG DAILY
     Route: 048
     Dates: start: 20100223, end: 20100325
  2. PEKIRON [Concomitant]
     Indication: ONYCHOMYCOSIS
     Route: 061
  3. CALSLOT [Concomitant]
     Indication: HYPERTENSION
     Dosage: 20 MG
     Route: 048
  4. BIOFERMIN [Concomitant]
     Dosage: 3 DF
     Route: 048
  5. UREPEARL [Concomitant]
     Route: 061
  6. KETOPROFEN [Concomitant]
  7. SHAKUYAKUKANZOUTOU [Concomitant]
     Dosage: 2.5 GRAM
     Route: 048

REACTIONS (12)
  - BLOOD CREATINE PHOSPHOKINASE INCREASED [None]
  - DIZZINESS [None]
  - FATIGUE [None]
  - GENERAL PHYSICAL CONDITION ABNORMAL [None]
  - HEMIPARESIS [None]
  - ILLITERACY [None]
  - INSOMNIA [None]
  - MALAISE [None]
  - MOVEMENT DISORDER [None]
  - MUSCULOSKELETAL PAIN [None]
  - MYALGIA [None]
  - RHABDOMYOLYSIS [None]
